FAERS Safety Report 25821724 (Version 1)
Quarter: 2025Q3

REPORT INFORMATION
  Report Type: Spontaneous
  Country: EU (occurrence: EU)
  Receive Date: 20250919
  Receipt Date: 20250919
  Transmission Date: 20251020
  Serious: Yes (Other)
  Sender: ACCORD
  Company Number: EU-Accord-505314

PATIENT
  Age: 27 Year
  Sex: Male

DRUGS (9)
  1. CARBOPLATIN [Suspect]
     Active Substance: CARBOPLATIN
     Indication: Hepatosplenic T-cell lymphoma
     Dates: start: 202003, end: 202005
  2. ETOPOSIDE [Suspect]
     Active Substance: ETOPOSIDE
     Indication: Hepatosplenic T-cell lymphoma
     Dates: start: 202003, end: 202005
  3. IFOSFAMIDE [Suspect]
     Active Substance: IFOSFAMIDE
     Indication: Hepatosplenic T-cell lymphoma
     Dates: start: 202003, end: 202005
  4. ETOPOSIDE [Suspect]
     Active Substance: ETOPOSIDE
     Indication: Bone marrow failure
     Dates: start: 202003, end: 202005
  5. CARBOPLATIN [Suspect]
     Active Substance: CARBOPLATIN
     Indication: Bone marrow failure
     Dates: start: 202003, end: 202005
  6. CARBOPLATIN [Suspect]
     Active Substance: CARBOPLATIN
     Indication: Aplastic anaemia
     Dates: start: 202003, end: 202005
  7. IFOSFAMIDE [Suspect]
     Active Substance: IFOSFAMIDE
     Indication: Bone marrow failure
     Dates: start: 202003, end: 202005
  8. ETOPOSIDE [Suspect]
     Active Substance: ETOPOSIDE
     Indication: Aplastic anaemia
     Dates: start: 202003, end: 202005
  9. IFOSFAMIDE [Suspect]
     Active Substance: IFOSFAMIDE
     Indication: Aplastic anaemia
     Dates: start: 202003, end: 202005

REACTIONS (5)
  - Febrile neutropenia [Unknown]
  - Sepsis [Unknown]
  - Bronchopulmonary aspergillosis [Unknown]
  - Therapy partial responder [Unknown]
  - Off label use [Unknown]

NARRATIVE: CASE EVENT DATE: 20200101
